FAERS Safety Report 22357350 (Version 1)
Quarter: 2023Q2

REPORT INFORMATION
  Report Type: Spontaneous
  Country: IT (occurrence: IT)
  Receive Date: 20230524
  Receipt Date: 20230524
  Transmission Date: 20230722
  Serious: Yes (Other)
  Sender: FDA-Public Use
  Company Number: IT-AUROBINDO-AUR-APL-2023-037715

PATIENT
  Age: 56 Year

DRUGS (8)
  1. CARVEDILOL [Suspect]
     Active Substance: CARVEDILOL
     Indication: Cardiac failure congestive
     Dosage: 12.5 MILLIGRAM
     Route: 065
  2. CARVEDILOL [Suspect]
     Active Substance: CARVEDILOL
     Indication: Ejection fraction decreased
  3. FUROSEMIDE [Suspect]
     Active Substance: FUROSEMIDE
     Indication: Cardiac failure congestive
     Dosage: 500 MILLIGRAM
     Route: 065
  4. FUROSEMIDE [Suspect]
     Active Substance: FUROSEMIDE
     Indication: Ejection fraction decreased
  5. METOLAZONE [Suspect]
     Active Substance: METOLAZONE
     Indication: Cardiac failure congestive
     Dosage: 10 MILLIGRAM
     Route: 065
  6. METOLAZONE [Suspect]
     Active Substance: METOLAZONE
     Indication: Ejection fraction decreased
  7. SPIRONOLACTONE [Suspect]
     Active Substance: SPIRONOLACTONE
     Indication: Cardiac failure congestive
     Dosage: 200 MILLIGRAM
     Route: 065
  8. SPIRONOLACTONE [Suspect]
     Active Substance: SPIRONOLACTONE
     Indication: Ejection fraction decreased

REACTIONS (1)
  - Drug ineffective [Unknown]
